FAERS Safety Report 8714887 (Version 3)
Quarter: 2012Q4

REPORT INFORMATION
  Report Type: 
  Country: BR (occurrence: BR)
  Receive Date: 20120809
  Receipt Date: 20121128
  Transmission Date: 20130627
  Serious: Yes (Death)
  Sender: FDA-Public Use
  Company Number: BR-PFIZER INC-2012190590

PATIENT
  Age: 4 Year
  Sex: Male

DRUGS (9)
  1. VORICONAZOLE [Suspect]
     Indication: FUSARIUM INFECTION
     Route: 042
  2. AMPHOTERICIN B [Suspect]
     Indication: FUSARIUM INFECTION
     Route: 042
  3. MEROPENEM [Concomitant]
     Indication: ANTIBIOTIC THERAPY
     Route: 042
  4. VANCOMYCIN [Concomitant]
     Indication: ANTIBIOTIC THERAPY
     Route: 042
  5. FLUCONAZOLE [Concomitant]
     Indication: ANTIBIOTIC THERAPY
     Route: 042
  6. ACICLOVIR [Concomitant]
     Route: 042
  7. G-CSF [Concomitant]
     Indication: NEUTROPENIA
     Route: 042
  8. LINEZOLID [Concomitant]
     Indication: PNEUMONIA
  9. POLYMYXIN B [Concomitant]
     Indication: PNEUMONIA
     Route: 042

REACTIONS (1)
  - Drug ineffective [Fatal]
